FAERS Safety Report 25202712 (Version 1)
Quarter: 2025Q2

REPORT INFORMATION
  Report Type: Spontaneous
  Country: US (occurrence: None)
  Receive Date: 20250416
  Receipt Date: 20250416
  Transmission Date: 20250716
  Serious: Yes (Death, Hospitalization)
  Sender: FDA-CTU
  Company Number: None

PATIENT
  Age: 28 Year
  Sex: Male
  Weight: 60.8 kg

DRUGS (5)
  1. BLEOMYCIN [Suspect]
     Active Substance: BLEOMYCIN SULFATE
  2. CISPLATIN [Suspect]
     Active Substance: CISPLATIN
  3. ETOPOSIDE [Suspect]
     Active Substance: ETOPOSIDE
  4. FILGRASTIM [Suspect]
     Active Substance: FILGRASTIM
  5. IFOSFAMIDE [Suspect]
     Active Substance: IFOSFAMIDE

REACTIONS (18)
  - Therapy interrupted [None]
  - Pulmonary toxicity [None]
  - Laboratory test abnormal [None]
  - Blast cells [None]
  - Blood lactate dehydrogenase increased [None]
  - Tumour lysis syndrome [None]
  - Thrombocytopenia [None]
  - Splenomegaly [None]
  - Hepatomegaly [None]
  - Renal failure [None]
  - Bone marrow failure [None]
  - Platelet transfusion [None]
  - Blood culture positive [None]
  - Staphylococcal infection [None]
  - Pleural effusion [None]
  - Respiratory failure [None]
  - Histiocytosis [None]
  - Multiple organ dysfunction syndrome [None]

NARRATIVE: CASE EVENT DATE: 20250324
